FAERS Safety Report 10799200 (Version 1)
Quarter: 2015Q1

REPORT INFORMATION
  Report Type: Spontaneous
  Country: US (occurrence: US)
  Receive Date: 20150216
  Receipt Date: 20150216
  Transmission Date: 20150721
  Serious: No
  Sender: FDA-Public Use
  Company Number: US-ALLERGAN-1401546US

PATIENT
  Sex: Female

DRUGS (5)
  1. HYDROEYE FISH OIL [Concomitant]
     Indication: DRY EYE
     Dosage: UNK, QID
     Route: 048
     Dates: start: 2013
  2. RESTASIS [Suspect]
     Active Substance: CYCLOSPORINE
     Indication: DRY EYE
     Dosage: 2 GTT, BID
     Route: 047
     Dates: start: 200603
  3. ORACEA [Concomitant]
     Active Substance: DOXYCYCLINE
     Indication: ROSACEA
     Dosage: UNK
     Route: 048
  4. SYSTANE (HYPROMELLOSE 2910 (4000 MPA.S)) [Concomitant]
     Active Substance: HYPROMELLOSE 2910 (4000 MPA.S)
     Indication: DRY EYE
     Dosage: 2 GTT, QPM
     Route: 047
  5. OASIS [Concomitant]
     Indication: DRY EYE
     Dosage: 2 GTT, QPM
     Route: 047
     Dates: start: 2013

REACTIONS (2)
  - Lacrimation increased [Unknown]
  - Dry eye [Unknown]
